FAERS Safety Report 5229126-X (Version None)
Quarter: 2007Q1

REPORT INFORMATION
  Report Type: 
  Country: None (occurrence: None)
  Receive Date: 20061201
  Receipt Date: 20060403
  Transmission Date: 20070707
  Serious: Yes (Hospitalization)
  Sender: FDA-Public Use
  Company Number: 2006-140682-NL

PATIENT
  Age: 34 Year
  Sex: Female
  Weight: 67.1 kg

DRUGS (2)
  1. NUVARING [Suspect]
     Indication: IN VITRO FERTILISATION
     Dosage: VAGINAL, 35 DAYS
     Route: 067
     Dates: start: 20060210, end: 20060316
  2. SYNTHROID [Concomitant]

REACTIONS (2)
  - DEEP VEIN THROMBOSIS [None]
  - PULMONARY EMBOLISM [None]
